FAERS Safety Report 7955889-6 (Version None)
Quarter: 2011Q4

REPORT INFORMATION
  Report Type: 
  Country: None (occurrence: None)
  Receive Date: 20111205
  Receipt Date: 20111129
  Transmission Date: 20120403
  Serious: No
  Sender: FDA-Public Use
  Company Number: US-BIOGENIDEC-2011BI045131

PATIENT
  Age: 50 Year
  Sex: Female

DRUGS (3)
  1. AVONEX [Concomitant]
     Indication: MULTIPLE SCLEROSIS
     Route: 030
     Dates: start: 20091201
  2. AVONEX [Concomitant]
     Route: 030
     Dates: start: 19970301
  3. TYSABRI [Suspect]
     Indication: MULTIPLE SCLEROSIS
     Route: 042
     Dates: start: 20101207

REACTIONS (5)
  - FEELING ABNORMAL [None]
  - HEAD DISCOMFORT [None]
  - GASTROENTERITIS VIRAL [None]
  - HEADACHE [None]
  - DIZZINESS [None]
